FAERS Safety Report 7572297-0 (Version None)
Quarter: 2011Q2

REPORT INFORMATION
  Report Type: 
  Country: None (occurrence: None)
  Receive Date: 20110624
  Receipt Date: 20110614
  Transmission Date: 20111010
  Serious: Yes (Other)
  Sender: FDA-Public Use
  Company Number: PHHY2011GR51990

PATIENT
  Age: 32 Year
  Sex: Male

DRUGS (1)
  1. EXTAVIA [Suspect]

REACTIONS (2)
  - VISION BLURRED [None]
  - ASTHENIA [None]
